FAERS Safety Report 4378611-1 (Version None)
Quarter: 2004Q2

REPORT INFORMATION
  Report Type: 
  Country: None (occurrence: None)
  Receive Date: 20040609
  Receipt Date: 20040526
  Transmission Date: 20050107
  Serious: Yes (Other)
  Sender: FDA-Public Use
  Company Number: US_0405103346

PATIENT
  Age: 56 Year
  Sex: Female

DRUGS (3)
  1. EVISTA [Suspect]
     Dates: start: 20020801, end: 20030324
  2. ACTONEL [Concomitant]
  3. CONJUGATED ESTROGEN [Concomitant]

REACTIONS (1)
  - SPINAL FRACTURE [None]
